FAERS Safety Report 15598742 (Version 1)
Quarter: 2018Q4

REPORT INFORMATION
  Report Type: Spontaneous
  Country: IN (occurrence: IN)
  Receive Date: 20181108
  Receipt Date: 20181108
  Transmission Date: 20190205
  Serious: Yes (Hospitalization, Other)
  Sender: FDA-Public Use
  Company Number: IN-DENTSPLY-2018SCDP000479

PATIENT
  Age: 58 Year
  Sex: Male

DRUGS (8)
  1. ISOFLURANE. [Concomitant]
     Active Substance: ISOFLURANE
     Indication: ANAESTHESIA
     Dosage: 0.6 %, UNK
  2. ESMOLOL [Concomitant]
     Active Substance: ESMOLOL HYDROCHLORIDE
     Indication: ANAESTHESIA
     Dosage: 20 MG, UNK
     Route: 042
  3. MORPHINE [Concomitant]
     Active Substance: MORPHINE
     Indication: ANAESTHESIA
     Dosage: 4.5 MG, UNK
  4. ISOFLURANE. [Concomitant]
     Active Substance: ISOFLURANE
     Dosage: 1-2 %
  5. FENTANYL. [Concomitant]
     Active Substance: FENTANYL
     Indication: ANAESTHESIA
     Dosage: 50 MICROGRAM, UNK
  6. LIDOCAINE. [Suspect]
     Active Substance: LIDOCAINE
     Indication: NECK DISSECTION
     Dosage: 5 ML LIGNOCAINE 2%
  7. PROPOFOL. [Concomitant]
     Active Substance: PROPOFOL
     Indication: ANAESTHESIA
     Dosage: 90 MG, UNK
  8. ATRACURIUM [Concomitant]
     Active Substance: ATRACURIUM
     Indication: ANAESTHESIA
     Dosage: 30 MG, UNK

REACTIONS (2)
  - Hypotension [Unknown]
  - Reflexes abnormal [Unknown]
